FAERS Safety Report 12131295 (Version 1)
Quarter: 2016Q1

REPORT INFORMATION
  Report Type: Spontaneous
  Country: KR (occurrence: KR)
  Receive Date: 20160301
  Receipt Date: 20160301
  Transmission Date: 20160526
  Serious: Yes (Hospitalization)
  Sender: FDA-Public Use
  Company Number: KR-AMGEN-KORCT2016024485

PATIENT
  Age: 49 Year
  Sex: Female
  Weight: 76.4 kg

DRUGS (23)
  1. G-LASTA [Suspect]
     Active Substance: PEGFILGRASTIM
     Indication: FEBRILE NEUTROPENIA
     Dosage: 6 MG, 1X/3WEEKS
     Route: 058
     Dates: start: 20151217
  2. PREDNISOLON                        /00016201/ [Concomitant]
     Active Substance: PREDNISOLONE
     Dosage: 100 MG, UNK
     Route: 048
     Dates: start: 20151216, end: 20151220
  3. G-LASTA [Suspect]
     Active Substance: PEGFILGRASTIM
     Dosage: 6 MG, 1X/3WEEKS
     Route: 058
     Dates: start: 20160108
  4. G-LASTA [Suspect]
     Active Substance: PEGFILGRASTIM
     Dosage: 6 MG, 1X/3WEEKS
     Route: 058
     Dates: start: 20160130
  5. DOXORUBICIN [Concomitant]
     Active Substance: DOXORUBICIN
     Dosage: 83 MG, UNK
     Route: 042
     Dates: start: 20160106, end: 20160106
  6. TYLENOL ER [Concomitant]
     Active Substance: ACETAMINOPHEN
     Dosage: 1950 MG, UNK
     Route: 048
     Dates: start: 20151217, end: 20151218
  7. VINCRISTINE [Concomitant]
     Active Substance: VINCRISTINE
     Dosage: 2 MG, UNK
     Route: 042
     Dates: start: 20151216, end: 20151216
  8. ULCERMIN                           /00434701/ [Concomitant]
     Dosage: 60 ML, UNK
     Route: 048
     Dates: start: 20151217, end: 20151218
  9. RITUXIMAB [Concomitant]
     Active Substance: RITUXIMAB
     Dosage: 697 MG, UNK
     Route: 042
     Dates: start: 20150129, end: 20150129
  10. CYCLOPHOSPHAMIDE. [Concomitant]
     Active Substance: CYCLOPHOSPHAMIDE
     Dosage: 1245 MG, UNK
     Route: 042
     Dates: start: 20160129, end: 20160129
  11. PREDNISOLON                        /00016201/ [Concomitant]
     Active Substance: PREDNISOLONE
     Dosage: 100 MG, UNK
     Route: 048
     Dates: start: 20160129, end: 20160202
  12. ATORVASTATIN CALCIUM. [Concomitant]
     Active Substance: ATORVASTATIN CALCIUM
     Dosage: 10 MG, UNK
     Route: 048
     Dates: start: 20160108
  13. RITUXIMAB [Concomitant]
     Active Substance: RITUXIMAB
     Dosage: 697 MG, UNK
     Route: 042
     Dates: start: 20150106, end: 20150106
  14. MAGNESIUM OXIDE. [Concomitant]
     Active Substance: MAGNESIUM OXIDE
     Dosage: 750 MG, UNK
     Route: 048
     Dates: start: 20151217, end: 20151231
  15. CYCLOPHOSPHAMIDE. [Concomitant]
     Active Substance: CYCLOPHOSPHAMIDE
     Dosage: 1245 MG, UNK
     Route: 042
     Dates: start: 20151216, end: 20151216
  16. CYCLOPHOSPHAMIDE. [Concomitant]
     Active Substance: CYCLOPHOSPHAMIDE
     Dosage: 1245 MG, UNK
     Route: 042
     Dates: start: 20160106, end: 20160106
  17. DOXORUBICIN [Concomitant]
     Active Substance: DOXORUBICIN
     Dosage: 83 MG, UNK
     Route: 042
     Dates: start: 20151216, end: 20151216
  18. DOXORUBICIN [Concomitant]
     Active Substance: DOXORUBICIN
     Dosage: 83 MG, UNK
     Route: 042
     Dates: start: 20160129, end: 20160129
  19. RITUXIMAB [Concomitant]
     Active Substance: RITUXIMAB
     Dosage: 697 MG, UNK
     Route: 042
     Dates: start: 20151216, end: 20151216
  20. VINCRISTINE [Concomitant]
     Active Substance: VINCRISTINE
     Dosage: 2 MG, UNK
     Route: 042
     Dates: start: 20160129, end: 20160129
  21. VINCRISTINE [Concomitant]
     Active Substance: VINCRISTINE
     Dosage: 2 MG, UNK
     Route: 042
     Dates: start: 20160106, end: 20160106
  22. PREDNISOLON                        /00016201/ [Concomitant]
     Active Substance: PREDNISOLONE
     Dosage: 100 MG, UNK
     Route: 048
     Dates: start: 20160106, end: 20160110
  23. PANTOPRAZOLE [Concomitant]
     Active Substance: PANTOPRAZOLE SODIUM
     Dosage: 20 MG, UNK
     Route: 048
     Dates: start: 20151217, end: 20151220

REACTIONS (1)
  - Febrile neutropenia [Recovered/Resolved]

NARRATIVE: CASE EVENT DATE: 20160205
